FAERS Safety Report 20480079 (Version 1)
Quarter: 2022Q1

REPORT INFORMATION
  Report Type: Spontaneous
  Country: US (occurrence: US)
  Receive Date: 20220216
  Receipt Date: 20220216
  Transmission Date: 20220423
  Serious: Yes (Hospitalization, Other)
  Sender: FDA-Public Use
  Company Number: US-INDIVIOR US-INDV-132959-2022

PATIENT
  Age: 30 Year
  Sex: Male

DRUGS (4)
  1. BUPRENORPHINE [Suspect]
     Active Substance: BUPRENORPHINE
     Indication: Product used for unknown indication
     Dosage: UNK
     Route: 065
  2. FENTANYL [Suspect]
     Active Substance: FENTANYL
     Indication: Product used for unknown indication
     Dosage: UNK
     Route: 065
  3. LOPERAMIDE [Suspect]
     Active Substance: LOPERAMIDE
     Indication: Diarrhoea
     Dosage: 20 MILLIGRAM, QD
     Route: 042
  4. LOPERAMIDE [Suspect]
     Active Substance: LOPERAMIDE
     Dosage: 40 MILLIGRAM, QD
     Route: 042

REACTIONS (11)
  - Torsade de pointes [Unknown]
  - Congestive cardiomyopathy [Unknown]
  - Long QT syndrome [Unknown]
  - Syncope [Recovered/Resolved]
  - Overdose [Recovered/Resolved]
  - Bradyarrhythmia [Not Recovered/Not Resolved]
  - Hypokalaemia [Recovered/Resolved]
  - Blood urea increased [Recovered/Resolved]
  - Blood creatinine increased [Recovered/Resolved]
  - Substance abuse [Unknown]
  - Diarrhoea [Unknown]
